FAERS Safety Report 14521323 (Version 1)
Quarter: 2018Q1

REPORT INFORMATION
  Report Type: Report from Study
  Country: DE (occurrence: DE)
  Receive Date: 20180212
  Receipt Date: 20180212
  Transmission Date: 20180509
  Serious: Yes (Hospitalization)
  Sender: FDA-Public Use
  Company Number: DE-OTSUKA-2018_002519

PATIENT
  Sex: Female

DRUGS (4)
  1. SEROQUEL [Concomitant]
     Active Substance: QUETIAPINE FUMARATE
     Indication: PRODUCT USED FOR UNKNOWN INDICATION
     Dosage: PACKAGE SIZE: N3, NUMBER OF PRESCRIPTIONS: 5
     Route: 065
  2. SEROQUEL [Concomitant]
     Active Substance: QUETIAPINE FUMARATE
     Dosage: SEROQUEL PROLONG, DOSAGE STRENGTH: 400MG, (PACKAGE SIZE: N2, NUMBER OF PRESCRIPTIONS: 3)
     Route: 065
  3. ARIPIPRAZOLE. [Suspect]
     Active Substance: ARIPIPRAZOLE
     Indication: SCHIZOPHRENIA
     Dosage: 400 MG, (DOSAGE STRENGTH: 400MG, NUMBER OF ADMINISTRATIONS: 6)
     Route: 065
  4. ABILIFY [Suspect]
     Active Substance: ARIPIPRAZOLE
     Indication: SCHIZOPHRENIA
     Dosage: PACKAGE SIZE: N2, NUMBER OF PRESCRIPTIONS: 2
     Route: 065

REACTIONS (3)
  - Drug intolerance [Unknown]
  - Hospitalisation [Unknown]
  - Adverse drug reaction [Unknown]
